FAERS Safety Report 4779727-8 (Version None)
Quarter: 2005Q3

REPORT INFORMATION
  Report Type: 
  Country: None (occurrence: None)
  Receive Date: 20050914
  Receipt Date: 20050428
  Transmission Date: 20060218
  Serious: Yes (Hospitalization)
  Sender: FDA-Public Use
  Company Number: 163-20785-05040030

PATIENT
  Sex: Female
  Weight: 53.3 kg

DRUGS (4)
  1. THALOMID [Suspect]
     Indication: NON-SMALL CELL LUNG CANCER
     Dosage: 200MG STARTING DAY 1 WITH WEEKLY TITRATION OF 100MG UP TO 1000MG, DAILY, ORAL
     Route: 048
     Dates: start: 20050117, end: 20050331
  2. PACLITAXEL [Suspect]
     Indication: NON-SMALL CELL LUNG CANCER
     Dosage: 225MG/M2 OVER 3 HOURS, DAY 1, EVERY 21 DAYS X 2, INTRAVENOUS
     Route: 042
     Dates: start: 20050117, end: 20050328
  3. CARBOPLATIN [Suspect]
     Indication: NON-SMALL CELL LUNG CANCER
     Dosage: AT AUC-6 OVER 15 TO 30 MINUTES ON DAY 1, EVERY 21 DAYS X 2, INTRAVENOUS
     Route: 042
     Dates: start: 20050117, end: 20050328
  4. RADIATION THERAPY [Suspect]
     Indication: NON-SMALL CELL LUNG CANCER
     Dosage: 60 GY OVER 6 WKS BETWEEN DAYS 43-50

REACTIONS (6)
  - CONSTIPATION [None]
  - DEHYDRATION [None]
  - OESOPHAGITIS [None]
  - PYREXIA [None]
  - RADIATION PNEUMONITIS [None]
  - VOMITING [None]
